FAERS Safety Report 13012299 (Version 1)
Quarter: 2016Q4

REPORT INFORMATION
  Report Type: Spontaneous
  Country: US (occurrence: US)
  Receive Date: 20161209
  Receipt Date: 20161209
  Transmission Date: 20170207
  Serious: No
  Sender: FDA-Public Use
  Company Number: US-PFIZER INC-2016464993

PATIENT
  Age: 66 Year
  Sex: Female
  Weight: 64.4 kg

DRUGS (30)
  1. IBRANCE [Suspect]
     Active Substance: PALBOCICLIB
     Indication: BREAST CANCER
     Dosage: 125 MG, CYCLIC [1 TAB(S) ORALLY ONCE A DAY X 21 DAYS THEN HOLD FOR 7 DAYS]
     Route: 048
     Dates: start: 201610
  2. BIOTIN 8 THRONE [Concomitant]
     Indication: HAIR DISORDER
  3. ONDANSETRON [Concomitant]
     Active Substance: ONDANSETRON
     Indication: NAUSEA
     Dosage: 4 MG, AS NEEDED [1 TAB(S) ORALLY EVERY 6 HOURS, AS NEEDED]
     Route: 048
  4. ATIVAN [Concomitant]
     Active Substance: LORAZEPAM
     Dosage: 2 MG, 1X/DAY [2 TAB(S) ORALLY ONCE A DAY X 1 FOR MRI]
     Route: 048
  5. CELEBREX [Concomitant]
     Active Substance: CELECOXIB
     Dosage: 200 MG, 2X/DAY
     Route: 048
  6. DILAUDID [Concomitant]
     Active Substance: HYDROMORPHONE HYDROCHLORIDE
     Indication: PAIN MANAGEMENT
     Dosage: 4 MG, AS NEEDED [1 TAB TO 2 TAB(S) ORALLY EVERY 4 HOURS X 30 DAYS AS NEEDED]
     Route: 048
  7. LIDODERM [Concomitant]
     Active Substance: LIDOCAINE
     Dosage: UNK [PPLY 1 PATCH TOPICALLY TO AFFECTED AREA ONCE A DAY. APPLY ON INTACT SKIN]
     Route: 061
  8. AMBIEN [Concomitant]
     Active Substance: ZOLPIDEM TARTRATE
     Indication: INSOMNIA
     Dosage: 10 MG, AS NEEDED [1 TAB(S) ORALLY ONCE A DAY (AT BEDTIME), AS NEEDED]
     Route: 048
  9. VITAMIN D3 [Concomitant]
     Active Substance: CHOLECALCIFEROL
     Indication: SUPPLEMENTATION THERAPY
  10. BISACODYL. [Concomitant]
     Active Substance: BISACODYL
     Dosage: 10 MG, UNK [2 TAB(S) ORALLY EVERY WITH 8 OZ OF WATER THE DAY PRIOR TO PROCEDURE FOR GI PREP]
     Route: 048
  11. CULTURELLE [Concomitant]
     Active Substance: LACTOBACILLUS RHAMNOSUS
     Dosage: 1 DF, 1X/DAY
     Route: 048
  12. VITAMIN D3 [Concomitant]
     Active Substance: CHOLECALCIFEROL
     Indication: BONE LOSS
     Dosage: 2000 IU, 1X/DAY [TAKE WITH FOOD.]
  13. ZOFRAN [Concomitant]
     Active Substance: ONDANSETRON HYDROCHLORIDE
     Indication: NAUSEA
     Dosage: 8 MG, AS NEEDED [1 Q 6 HR PRN] [1 DOSE(S) ORALLY EVERY 6 HOURS X 3 DAYS]
     Route: 048
  14. LOMOTIL [Concomitant]
     Active Substance: ATROPINE SULFATE\DIPHENOXYLATE HYDROCHLORIDE
     Indication: DIARRHOEA
     Dosage: 1 DF, AS NEEDED [1 DOSE(S) ORALLY EVERY 6 HOURS X 3 DAYS]
     Route: 048
  15. GABAPENTIN. [Concomitant]
     Active Substance: GABAPENTIN
     Dosage: 900 MG, 2X/DAY
     Route: 048
  16. PLAQUENIL [Concomitant]
     Active Substance: HYDROXYCHLOROQUINE SULFATE
     Dosage: 200 MG, 2X/DAY
     Route: 048
  17. VOLTAREN [Concomitant]
     Active Substance: DICLOFENAC SODIUM
     Dosage: UNK [APPLY TOPICALLY TO AFFECTED AREA 4 TIMES A DAY]
     Route: 061
  18. STRESS B-COMPLEX [Concomitant]
     Dosage: 2 DF, DAILY  [TAKE 2 CAPS A DAY ONE CAPSULE]
  19. COENZYME Q10 [Concomitant]
     Active Substance: UBIDECARENONE
     Indication: CARDIAC DISORDER
     Dosage: 100 MG, 2X/DAY
  20. ARIMIDEX [Concomitant]
     Active Substance: ANASTROZOLE
     Dosage: 1 MG, 1X/DAY
     Route: 048
  21. ONDANSETRON [Concomitant]
     Active Substance: ONDANSETRON
     Indication: VOMITING
  22. ATIVAN [Concomitant]
     Active Substance: LORAZEPAM
     Dosage: 1 MG, 3X/DAY
     Route: 048
  23. CYMBALTA [Concomitant]
     Active Substance: DULOXETINE HYDROCHLORIDE
     Dosage: 60 MG, 1X/DAY
     Route: 048
  24. WELLBUTRIN [Concomitant]
     Active Substance: BUPROPION HYDROCHLORIDE
     Dosage: 75 MG, AS NEEDED [1 TAB(S) ORALLY 2 TIMES A DAY PRN]
     Route: 048
  25. FOLIC ACID. [Concomitant]
     Active Substance: FOLIC ACID
     Dosage: 0.4 MG, 1X/DAY
     Route: 048
  26. DIAZEPAM. [Concomitant]
     Active Substance: DIAZEPAM
     Dosage: 10 MG, 2X/DAY
     Route: 048
  27. ESOMEPRAZOLE [Concomitant]
     Active Substance: ESOMEPRAZOLE
     Dosage: 40 MG, 1X/DAY
     Route: 048
  28. POTASSIUM CHLORIDE. [Concomitant]
     Active Substance: POTASSIUM CHLORIDE
     Dosage: 10 MEQ, 1X/DAY
     Route: 048
  29. BLACK COHOSH [Concomitant]
     Active Substance: BLACK COHOSH
     Indication: HOT FLUSH
     Dosage: UNK [250 MG; 1-2 CAP(S) ORALLY 1-2 TIMES A DAY]
     Route: 048
  30. BIOTIN 8 THRONE [Concomitant]
     Indication: NAIL DISORDER
     Dosage: 1 DF, DAILY [TAKE 1 CAPSULE A DAY]

REACTIONS (11)
  - White blood cell count decreased [Unknown]
  - Vomiting [Unknown]
  - Drug dose omission [Unknown]
  - Asthenia [Unknown]
  - Diarrhoea [Unknown]
  - Lethargy [Unknown]
  - Malaise [Not Recovered/Not Resolved]
  - Fatigue [Unknown]
  - Insomnia [Unknown]
  - Abdominal discomfort [Unknown]
  - Decreased appetite [Recovering/Resolving]

NARRATIVE: CASE EVENT DATE: 201611
